FAERS Safety Report 9892605 (Version 3)
Quarter: 2014Q2

REPORT INFORMATION
  Report Type: Spontaneous
  Country: FR (occurrence: FR)
  Receive Date: 20140212
  Receipt Date: 20140415
  Transmission Date: 20141212
  Serious: Yes (Other)
  Sender: FDA-Public Use
  Company Number: FR-GILEAD-2014-0093813

PATIENT
  Age: 44 Year
  Sex: Female
  Weight: 68 kg

DRUGS (2)
  1. VIREAD [Suspect]
     Indication: HEPATITIS B
     Dosage: 1 DF, QD
     Route: 048
     Dates: start: 201306
  2. BARACLUDE [Concomitant]
     Indication: HEPATITIS B
     Dosage: UNK
     Route: 065
     Dates: start: 20110101

REACTIONS (1)
  - Abortion spontaneous [Recovered/Resolved]
